FAERS Safety Report 25969884 (Version 1)
Quarter: 2025Q4

REPORT INFORMATION
  Report Type: Spontaneous
  Country: US (occurrence: None)
  Receive Date: 20251028
  Receipt Date: 20251028
  Transmission Date: 20260118
  Serious: No
  Sender: UCB
  Company Number: US-UCBSA-2025039733

PATIENT

DRUGS (1)
  1. BIMZELX [Suspect]
     Active Substance: BIMEKIZUMAB-BKZX
     Indication: Hidradenitis
     Dosage: 320 MILLIGRAM

REACTIONS (5)
  - Abdominal discomfort [Recovering/Resolving]
  - Excessive cerumen production [Unknown]
  - Incorrect dose administered [Unknown]
  - Product leakage [Unknown]
  - Device issue [Unknown]
